FAERS Safety Report 4646630-3 (Version None)
Quarter: 2005Q2

REPORT INFORMATION
  Report Type: 
  Country: None (occurrence: None)
  Receive Date: 20050427
  Receipt Date: 20041223
  Transmission Date: 20051028
  Serious: Yes (Hospitalization)
  Sender: FDA-Public Use
  Company Number: PHRM2004FR03774

PATIENT
  Age: 43 Year
  Sex: Female

DRUGS (6)
  1. COTAREG [Suspect]
     Dosage: 1 DF, QD
     Route: 048
     Dates: end: 20040914
  2. FLUDEX [Suspect]
     Dosage: 1 DF, QD
     Route: 048
     Dates: end: 20040914
  3. LERCAN [Suspect]
     Dosage: 1 DF, QD
     Route: 048
     Dates: end: 20040914
  4. DAFALGAN [Concomitant]
  5. EUPHYLLINE [Concomitant]
  6. EUPRESSYL [Concomitant]

REACTIONS (14)
  - BLOOD ALDOSTERONE INCREASED [None]
  - BLOOD CALCIUM DECREASED [None]
  - BLOOD CREATININE INCREASED [None]
  - BLOOD PHOSPHORUS INCREASED [None]
  - BLOOD UREA INCREASED [None]
  - C-REACTIVE PROTEIN INCREASED [None]
  - DEHYDRATION [None]
  - DIALYSIS [None]
  - DIARRHOEA [None]
  - MICROCYTIC ANAEMIA [None]
  - PRIMARY HYPERALDOSTERONISM [None]
  - RENAL FAILURE ACUTE [None]
  - RENIN INCREASED [None]
  - WEIGHT DECREASED [None]
